FAERS Safety Report 6795943-8 (Version None)
Quarter: 2010Q2

REPORT INFORMATION
  Report Type: 
  Country: None (occurrence: None)
  Receive Date: 20100625
  Receipt Date: 20100617
  Transmission Date: 20101027
  Serious: Yes (Other)
  Sender: FDA-Public Use
  Company Number: B0661121A

PATIENT
  Age: 63 Year
  Sex: Male
  Weight: 96.2 kg

DRUGS (3)
  1. SALMETEROL [Suspect]
     Indication: CHRONIC OBSTRUCTIVE PULMONARY DISEASE
     Dosage: 4IUAX PER DAY
     Route: 055
     Dates: start: 20100512, end: 20100517
  2. VENTOLIN [Concomitant]
     Indication: CHRONIC OBSTRUCTIVE PULMONARY DISEASE
     Route: 055
     Dates: start: 20100512
  3. TIOTROPIUM BROMIDE [Concomitant]
     Indication: CHRONIC OBSTRUCTIVE PULMONARY DISEASE
     Dosage: 18MCG PER DAY
     Route: 055
     Dates: start: 20100517

REACTIONS (4)
  - HEART RATE INCREASED [None]
  - HYPERTENSION [None]
  - LETHARGY [None]
  - OEDEMA PERIPHERAL [None]
